FAERS Safety Report 16060799 (Version 1)
Quarter: 2019Q1

REPORT INFORMATION
  Report Type: Spontaneous
  Country: SE (occurrence: SE)
  Receive Date: 20190312
  Receipt Date: 20190312
  Transmission Date: 20190418
  Serious: Yes (Life-Threatening, Hospitalization, Disabling, Other)
  Sender: FDA-Public Use
  Company Number: SE-DEXPHARM-20190171

PATIENT
  Age: 74 Year
  Sex: Female
  Weight: 45 kg

DRUGS (22)
  1. OXASCAND [Interacting]
     Active Substance: OXAZEPAM
  2. LEVAXIN [Interacting]
     Active Substance: LEVOTHYROXINE SODIUM
     Indication: HYPOTHYROIDISM
     Dosage: 300 MG
  3. TROMBYL [Interacting]
     Active Substance: ASPIRIN
     Indication: ANTICOAGULANT THERAPY
  4. ISOSORBIDE MONONITRATE. [Interacting]
     Active Substance: ISOSORBIDE MONONITRATE
     Indication: VASODILATATION
  5. HIRUDOID [Interacting]
     Active Substance: GLYCOSAMINOGLYCANS
     Indication: VARICOSE VEIN
  6. PRAMIPEXOLE. [Interacting]
     Active Substance: PRAMIPEXOLE
     Indication: MUSCLE SPASMS
  7. ATORVASTATIN [Interacting]
     Active Substance: ATORVASTATIN
     Indication: BLOOD CHOLESTEROL INCREASED
  8. ASPIRIN. [Interacting]
     Active Substance: ASPIRIN
     Indication: PAIN
  9. DIAZEMULS NOVUM [Interacting]
     Active Substance: DIAZEPAM
     Indication: ANXIETY
  10. ALVEDON [Interacting]
     Active Substance: ACETAMINOPHEN
     Indication: PAIN
  11. GLYCERYL TRINITRATE [Interacting]
     Active Substance: NITROGLYCERIN
     Indication: VASODILATATION
  12. ACETYLCYSTEINE. [Suspect]
     Active Substance: ACETYLCYSTEINE
     Indication: INCREASED VISCOSITY OF UPPER RESPIRATORY SECRETION
  13. NATRIUMKLORID [Interacting]
     Active Substance: SODIUM CHLORIDE
  14. HALDOL [Interacting]
     Active Substance: HALOPERIDOL
  15. TRAMADOL. [Interacting]
     Active Substance: TRAMADOL
     Indication: PAIN
  16. HEMINEVRIN [Interacting]
     Active Substance: CLOMETHIAZOLE
     Indication: ANXIETY
     Dosage: 300 MG
  17. NIFEREX (FERROGLYCINE SULFATE COMPLEX) [Interacting]
     Active Substance: FERROGLYCINE SULFATE
     Indication: MINERAL SUPPLEMENTATION
  18. ESOMEPRAZOLE. [Interacting]
     Active Substance: ESOMEPRAZOLE MAGNESIUM
  19. HEMINEVRIN [Interacting]
     Active Substance: CLOMETHIAZOLE
     Indication: SLEEP DISORDER
  20. HEMINEVRIN [Interacting]
     Active Substance: CLOMETHIAZOLE
     Indication: CONFUSIONAL STATE
  21. DIMETICONE [Interacting]
     Active Substance: DIMETHICONE
     Indication: FLATULENCE
  22. METOPROLOL. [Interacting]
     Active Substance: METOPROLOL
     Indication: HYPERTENSION

REACTIONS (3)
  - Drug interaction [Unknown]
  - Sedation [Unknown]
  - Muscle atrophy [Unknown]

NARRATIVE: CASE EVENT DATE: 2013
